FAERS Safety Report 11195407 (Version 1)
Quarter: 2015Q2

REPORT INFORMATION
  Report Type: Spontaneous
  Country: US (occurrence: None)
  Receive Date: 20150615
  Receipt Date: 20150615
  Transmission Date: 20150821
  Serious: No
  Sender: FDA-Public Use
  Company Number: None

PATIENT
  Age: 77 Year
  Sex: Female
  Weight: 79.38 kg

DRUGS (19)
  1. ASPIRIN. [Concomitant]
     Active Substance: ASPIRIN
  2. GLUCOSAMINE [Concomitant]
     Active Substance: GLUCOSAMINE
  3. PAXAL [Concomitant]
  4. ALEVE [Concomitant]
     Active Substance: NAPROXEN SODIUM
  5. FLUOXETINE [Suspect]
     Active Substance: FLUOXETINE\FLUOXETINE HYDROCHLORIDE
     Indication: POST-TRAUMATIC STRESS DISORDER
     Dosage: 20 MG, AM
     Route: 048
     Dates: end: 20150508
  6. FLUOXETINE [Suspect]
     Active Substance: FLUOXETINE\FLUOXETINE HYDROCHLORIDE
     Indication: FLASHBACK
     Dosage: 20 MG, AM
     Route: 048
     Dates: end: 20150508
  7. GERITOL [Concomitant]
     Active Substance: MINERALS\VITAMINS
  8. PREMARIN [Concomitant]
     Active Substance: ESTROGENS, CONJUGATED
  9. FLUOXETINE [Suspect]
     Active Substance: FLUOXETINE\FLUOXETINE HYDROCHLORIDE
     Indication: PANIC ATTACK
     Dosage: 20 MG, AM
     Route: 048
     Dates: end: 20150508
  10. METOPROLOL SUCCINATE. [Concomitant]
     Active Substance: METOPROLOL SUCCINATE
  11. IRON [Concomitant]
     Active Substance: IRON
  12. CALCIUM [Concomitant]
     Active Substance: CALCIUM
  13. TRIAZOLAM. [Concomitant]
     Active Substance: TRIAZOLAM
  14. AMLODIPINE BESYLATE. [Concomitant]
     Active Substance: AMLODIPINE BESYLATE
  15. NITRO-DUR [Concomitant]
     Active Substance: NITROGLYCERIN
  16. GLYCOPYPROL [Concomitant]
  17. PROBOTIC [Concomitant]
     Active Substance: PROBIOTICS NOS
  18. FLUOXETINE [Suspect]
     Active Substance: FLUOXETINE\FLUOXETINE HYDROCHLORIDE
     Indication: LOSS OF CONSCIOUSNESS
     Dosage: 20 MG, AM
     Route: 048
     Dates: end: 20150508
  19. NITROGLYCIERINE [Concomitant]

REACTIONS (12)
  - Panic attack [None]
  - Amnesia [None]
  - Heart rate increased [None]
  - Product quality issue [None]
  - Headache [None]
  - Oropharyngeal pain [None]
  - Confusional state [None]
  - Fatigue [None]
  - Sinus disorder [None]
  - Fall [None]
  - Loss of consciousness [None]
  - Product formulation issue [None]
